FAERS Safety Report 9241386 (Version 1)
Quarter: 2013Q1

REPORT INFORMATION
  Report Type: Spontaneous
  Country: US (occurrence: None)
  Receive Date: 20121114
  Receipt Date: 20121114
  Transmission Date: 20140127
  Serious: Yes (Hospitalization)
  Sender: FDA-Public Use
  Company Number: 2012-002981

PATIENT
  Age: 36 Year
  Sex: Female
  Weight: 152.8 kg

DRUGS (2)
  1. LO LOESTRIN FE [Suspect]
     Dates: start: 20120330, end: 20120405
  2. TRANEXAMIC ACID (TRANEXAMIC ACID) [Suspect]
     Indication: MENORRHAGIA
     Route: 048
     Dates: start: 20120405, end: 20120408

REACTIONS (5)
  - Pulmonary embolism [None]
  - Deep vein thrombosis [None]
  - Swelling face [None]
  - Dyspnoea [None]
  - Drug ineffective [None]
